FAERS Safety Report 23747094 (Version 1)
Quarter: 2024Q2

REPORT INFORMATION
  Report Type: Report from Study
  Country: NL (occurrence: NL)
  Receive Date: 20240416
  Receipt Date: 20240416
  Transmission Date: 20240716
  Serious: Yes (Other)
  Sender: FDA-Public Use
  Company Number: NL-GTI-000231

PATIENT
  Age: 25 Month
  Sex: Female

DRUGS (5)
  1. PREDNISONE [Suspect]
     Active Substance: PREDNISONE
     Indication: Prophylaxis against graft versus host disease
     Route: 065
  2. CYCLOSPORINE [Suspect]
     Active Substance: CYCLOSPORINE
     Indication: Prophylaxis against graft versus host disease
     Route: 065
  3. MYCOPHENOLATE MOFETIL [Suspect]
     Active Substance: MYCOPHENOLATE MOFETIL
     Indication: Prophylaxis against graft versus host disease
     Route: 065
  4. FLUDARABINE [Suspect]
     Active Substance: FLUDARABINE PHOSPHATE
     Indication: Prophylaxis against graft versus host disease
     Route: 065
  5. BUSULFAN [Suspect]
     Active Substance: BUSULFAN
     Indication: Prophylaxis against graft versus host disease
     Route: 065

REACTIONS (18)
  - Polyneuropathy [Unknown]
  - Disease progression [Unknown]
  - Lymphocyte count [Recovered/Resolved]
  - Metachromatic leukodystrophy [Unknown]
  - Condition aggravated [Unknown]
  - Chronic inflammatory demyelinating polyradiculoneuropathy [Unknown]
  - Paresis [Unknown]
  - Eyelid ptosis [Unknown]
  - Graft versus host disease [Unknown]
  - Demyelinating polyneuropathy [Unknown]
  - Hypotonia [Recovered/Resolved]
  - Tremor [Recovered/Resolved]
  - Blood immunoglobulin G decreased [Recovered/Resolved]
  - Ataxia [Recovered/Resolved]
  - Muscular weakness [Recovered/Resolved]
  - Agranulocytosis [Unknown]
  - Disease recurrence [Unknown]
  - Pericarditis [Recovered/Resolved]
